FAERS Safety Report 8281518-0 (Version None)
Quarter: 2012Q2

REPORT INFORMATION
  Report Type: 
  Country: None (occurrence: None)
  Receive Date: 20120410
  Receipt Date: 20120328
  Transmission Date: 20120825
  Serious: Yes (Hospitalization, Other)
  Sender: FDA-Public Use
  Company Number: AUR-APL-2012-01609

PATIENT
  Age: 74 Year
  Sex: Male
  Weight: 80 kg

DRUGS (4)
  1. BENDROFLUMETHIAZIDE (BENDROFLUMETHIAZIDE) [Concomitant]
  2. VITAMIN D [Concomitant]
  3. SAW PALMETTO (SERENOA REPENS) [Concomitant]
  4. CITALOPRAM HYDROBROMIDE [Suspect]
     Indication: DEPRESSED MOOD
     Dosage: 10 MG (10 MG, 1 IN 1 D), ORAL
     Route: 048
     Dates: start: 20111213, end: 20111230

REACTIONS (6)
  - TREMOR [None]
  - MEMORY IMPAIRMENT [None]
  - DYSARTHRIA [None]
  - APHASIA [None]
  - HYPONATRAEMIA [None]
  - SPEECH DISORDER [None]
